FAERS Safety Report 16668832 (Version 2)
Quarter: 2019Q4

REPORT INFORMATION
  Report Type: Spontaneous
  Country: JP (occurrence: JP)
  Receive Date: 20190805
  Receipt Date: 20191018
  Transmission Date: 20200122
  Serious: Yes (Hospitalization)
  Sender: FDA-Public Use
  Company Number: JP-ELI_LILLY_AND_COMPANY-JP201907014709

PATIENT
  Age: 88 Year
  Sex: Male

DRUGS (1)
  1. TRULICITY [Suspect]
     Active Substance: DULAGLUTIDE
     Indication: DIABETES MELLITUS
     Dosage: 0.75 MG
     Route: 058
     Dates: start: 20151102, end: 20160812

REACTIONS (2)
  - Sepsis [Recovered/Resolved]
  - Emphysematous cholecystitis [Recovered/Resolved]

NARRATIVE: CASE EVENT DATE: 20160810
